FAERS Safety Report 8282743-5 (Version None)
Quarter: 2012Q2

REPORT INFORMATION
  Report Type: 
  Country: None (occurrence: None)
  Receive Date: 20120413
  Receipt Date: 20120403
  Transmission Date: 20120825
  Serious: Yes (Hospitalization)
  Sender: FDA-Public Use
  Company Number: CA-ROCHE-795413

PATIENT
  Sex: Female
  Weight: 56 kg

DRUGS (14)
  1. ACTEMRA [Suspect]
  2. PANTOPRAZOLE [Concomitant]
  3. FUROSEMIDE [Concomitant]
  4. PREDNISONE TAB [Concomitant]
  5. LISINOPRIL [Concomitant]
  6. WARFARIN SODIUM [Concomitant]
  7. MORPHINE [Concomitant]
  8. CALCIUM SUPPLEMENT [Concomitant]
  9. GOLD INJECTION [Concomitant]
  10. ACTEMRA [Suspect]
     Indication: RHEUMATOID ARTHRITIS
     Route: 042
     Dates: start: 20110512, end: 20110707
  11. PLAQUENIL [Concomitant]
  12. FOLIC ACID [Concomitant]
  13. ALENDRONATE SODIUM [Concomitant]
  14. AUROTHIOMALATE [Concomitant]

REACTIONS (5)
  - FALL [None]
  - LOWER LIMB FRACTURE [None]
  - KNEE ARTHROPLASTY [None]
  - JOINT INJURY [None]
  - ARTHRITIS INFECTIVE [None]
